FAERS Safety Report 8608551-0 (Version None)
Quarter: 2012Q3

REPORT INFORMATION
  Report Type: 
  Country: None (occurrence: None)
  Receive Date: 20120821
  Receipt Date: 20120814
  Transmission Date: 20120928
  Serious: Yes (Other)
  Sender: FDA-Public Use
  Company Number: US-PFIZER INC-2004086030

PATIENT
  Age: 62 Year
  Sex: Male
  Weight: 93 kg

DRUGS (9)
  1. DILANTIN KAPSEAL [Suspect]
     Indication: CONVULSION
     Dosage: 100 MG, 1X/DAY
     Route: 048
  2. ACETYLSALICYLIC ACID [Concomitant]
     Dosage: UNK
     Route: 048
  3. PHENOBARBITAL TAB [Concomitant]
     Route: 048
  4. DILANTIN [Suspect]
     Indication: ILL-DEFINED DISORDER
     Dosage: 200 MG, 2X/DAY
     Route: 048
  5. DOXAZOSIN MESYLATE [Concomitant]
     Dosage: UNK
  6. NAPROXEN [Concomitant]
     Dosage: UNK
     Route: 048
  7. FINASTERIDE [Concomitant]
     Route: 048
  8. DILANTIN KAPSEAL [Suspect]
     Indication: EPILEPSY
  9. ENALAPRIL MALEATE [Concomitant]
     Route: 048

REACTIONS (5)
  - ARTHRITIS [None]
  - BACK PAIN [None]
  - INTERVERTEBRAL DISC COMPRESSION [None]
  - NEUROPATHY PERIPHERAL [None]
  - PERIPHERAL COLDNESS [None]
